FAERS Safety Report 24882455 (Version 2)
Quarter: 2025Q1

REPORT INFORMATION
  Report Type: Spontaneous
  Country: CN (occurrence: CN)
  Receive Date: 20250124
  Receipt Date: 20250201
  Transmission Date: 20250409
  Serious: Yes (Death, Life-Threatening, Hospitalization, Other)
  Sender: ACCORD
  Company Number: CN-Accord-465509

PATIENT
  Age: 50 Year
  Sex: Female

DRUGS (1)
  1. METHOTREXATE [Suspect]
     Active Substance: METHOTREXATE
     Indication: Rheumatoid arthritis
     Route: 048

REACTIONS (8)
  - Haemorrhage intracranial [Fatal]
  - Pancytopenia [Fatal]
  - Epidermolysis bullosa [Fatal]
  - Drug eruption [Fatal]
  - Liver injury [Fatal]
  - Toxicity to various agents [Fatal]
  - Mouth ulceration [Not Recovered/Not Resolved]
  - Hepatic failure [Not Recovered/Not Resolved]
